FAERS Safety Report 9630050 (Version 1)
Quarter: 2013Q4

REPORT INFORMATION
  Report Type: Spontaneous
  Country: FR (occurrence: FR)
  Receive Date: 20131017
  Receipt Date: 20131017
  Transmission Date: 20140711
  Serious: Yes (Hospitalization)
  Sender: FDA-Public Use
  Company Number: FR-TEVA-436866ISR

PATIENT
  Age: 79 Year
  Sex: Male

DRUGS (8)
  1. AZILECT 1MG [Suspect]
     Indication: PARKINSON^S DISEASE
     Dosage: 1 DOSAGE FORMS DAILY;
     Route: 048
  2. MOTILIUM [Suspect]
     Indication: GASTROOESOPHAGEAL REFLUX DISEASE
     Dosage: 2 DOSAGE FORMS DAILY;
     Route: 048
     Dates: start: 20120312, end: 201305
  3. KARDEGIC [Concomitant]
     Dosage: 1 DOSAGE FORMS DAILY; LONG-TERM TREATMENT
     Route: 048
  4. APROVEL 150 MG [Concomitant]
     Dosage: 1 DOSAGE FORMS DAILY; LONG-TERM TREATMENT
     Route: 048
  5. BISOPROLOL [Concomitant]
     Dosage: 5 MILLIGRAM DAILY; LONG-TERM TREATMENT
     Route: 048
  6. CRESTOR [Concomitant]
     Dosage: 1 DOSAGE FORMS DAILY; LONG-TERM TREATMENT
     Route: 048
  7. TRIVASTAL 50MG LP [Concomitant]
     Dosage: 3 DOSAGE FORMS DAILY; LONG-TERM TREATMENT
     Route: 048
  8. TRIVASTAL 50MG LP [Concomitant]
     Dosage: INCREASED TO 100MG IN THE MORNING AND IN THE EVENING
     Route: 048

REACTIONS (2)
  - Dystonia [Recovered/Resolved]
  - Restless legs syndrome [Recovered/Resolved]
